FAERS Safety Report 6742542-X (Version None)
Quarter: 2010Q2

REPORT INFORMATION
  Report Type: 
  Country: None (occurrence: None)
  Receive Date: 20100526
  Receipt Date: 20100504
  Transmission Date: 20101027
  Serious: Yes (Hospitalization, Other)
  Sender: FDA-Public Use
  Company Number: US-BAXTER-2010BH012712

PATIENT
  Sex: Male

DRUGS (2)
  1. HEPARIN SODIUM 1,000 UNITS AND SODIUM CHLORIDE 0.9% [Suspect]
     Indication: DRUG USE FOR UNKNOWN INDICATION
     Route: 065
     Dates: start: 20100327, end: 20100327
  2. WARFARIN SODIUM [Concomitant]
     Indication: DRUG USE FOR UNKNOWN INDICATION
     Route: 065

REACTIONS (7)
  - BLOOD URINE PRESENT [None]
  - HAEMOGLOBIN DECREASED [None]
  - HAEMOLYSIS [None]
  - NEEDLE ISSUE [None]
  - THROMBOSIS IN DEVICE [None]
  - THROMBOTIC THROMBOCYTOPENIC PURPURA [None]
  - UNDERDOSE [None]
